FAERS Safety Report 10154274 (Version 3)
Quarter: 2014Q3

REPORT INFORMATION
  Report Type: Spontaneous
  Country: IT (occurrence: IT)
  Receive Date: 20140506
  Receipt Date: 20140929
  Transmission Date: 20150326
  Serious: Yes (Hospitalization, Other)
  Sender: FDA-Public Use
  Company Number: IT-009507513-1404ITA015242

PATIENT
  Age: 83 Year
  Sex: Female

DRUGS (14)
  1. HALCION [Interacting]
     Active Substance: TRIAZOLAM
     Indication: HYPNOTHERAPY
     Dosage: DAILY DOSE 125 MICROGRAM
     Route: 048
     Dates: start: 20130101, end: 20140413
  2. FLUIFORT [Concomitant]
     Indication: COUGH
     Dosage: UNK
  3. LASIX [Concomitant]
     Active Substance: FUROSEMIDE
     Indication: DIURETIC THERAPY
     Dosage: UNK
     Route: 048
  4. SINEMET [Suspect]
     Active Substance: CARBIDOPA\LEVODOPA
     Indication: TREMOR
     Dosage: DAILY DOSE 250 MG
     Route: 048
     Dates: start: 20120203, end: 20140413
  5. LASIX [Concomitant]
     Active Substance: FUROSEMIDE
     Indication: CARDIAC FAILURE
  6. MINIAS [Interacting]
     Active Substance: LORMETAZEPAM
     Indication: HYPNOTHERAPY
     Dosage: 2.5NG/ML,  DAILY DOSE 10 DROPS
     Route: 048
     Dates: start: 20120203, end: 20140413
  7. AMLODIPINE [Concomitant]
     Active Substance: AMLODIPINE BESYLATE
     Dosage: UNK
     Route: 048
  8. CARDIOASPIRIN [Concomitant]
     Active Substance: ASPIRIN
     Indication: CARDIAC FAILURE
     Dosage: 100 MG
     Route: 048
  9. CARDIOASPIRIN [Concomitant]
     Active Substance: ASPIRIN
     Indication: HYPERTENSION
  10. OMEPRAZOLE. [Concomitant]
     Active Substance: OMEPRAZOLE
     Indication: GASTRIC ULCER
     Dosage: UNK
     Route: 048
  11. TIMOLOL MALEATE. [Concomitant]
     Active Substance: TIMOLOL MALEATE
     Indication: GLAUCOMA
     Route: 047
  12. TRIATEC (RAMIPRIL) [Concomitant]
     Active Substance: RAMIPRIL
     Indication: CARDIAC FAILURE
     Dosage: 2.5 MG
     Route: 048
  13. LASIX [Concomitant]
     Active Substance: FUROSEMIDE
     Indication: HYPERTENSION
  14. TRIATEC (RAMIPRIL) [Concomitant]
     Active Substance: RAMIPRIL
     Indication: HYPERTENSION

REACTIONS (1)
  - Coma [Recovered/Resolved]

NARRATIVE: CASE EVENT DATE: 20140413
